FAERS Safety Report 23966256 (Version 1)
Quarter: 2024Q2

REPORT INFORMATION
  Report Type: Spontaneous
  Country: GB (occurrence: GB)
  Receive Date: 20240612
  Receipt Date: 20240612
  Transmission Date: 20240716
  Serious: Yes (Disabling, Other)
  Sender: FDA-Public Use
  Company Number: GB-MHRA-MED-202405301051100550-QCLBH

PATIENT
  Age: 57 Year
  Sex: Female
  Weight: 44 kg

DRUGS (1)
  1. VENLAFAXINE [Suspect]
     Active Substance: VENLAFAXINE HYDROCHLORIDE
     Indication: Anxiety
     Dosage: 37.5 MILLIGRAM, TWO TIMES A DAY( PROPANADOL TO HELP WITH THIS)
     Route: 065
     Dates: start: 20240520

REACTIONS (5)
  - Anxiety [Recovering/Resolving]
  - Headache [Recovering/Resolving]
  - Tremor [Recovering/Resolving]
  - Agitation [Recovering/Resolving]
  - Hyperhidrosis [Recovering/Resolving]

NARRATIVE: CASE EVENT DATE: 20240520
